FAERS Safety Report 9405693 (Version 1)
Quarter: 2013Q3

REPORT INFORMATION
  Report Type: Spontaneous
  Country: KR (occurrence: KR)
  Receive Date: 20130717
  Receipt Date: 20130717
  Transmission Date: 20140515
  Serious: Yes (Hospitalization, Other)
  Sender: FDA-Public Use
  Company Number: KR-SPECTRUM PHARMACEUTICALS, INC.-13-F-KR-00174

PATIENT
  Age: 75 Year
  Sex: Male

DRUGS (1)
  1. FOLOTYN [Suspect]
     Indication: PERIPHERAL T-CELL LYMPHOMA UNSPECIFIED
     Dosage: 20 MG/M2,  1ST-3RD WEEK- 2 VIALS/WEEK , OBSERVATION PERIOD FOR 2 WEEKS, RE-TREATED WITH 1 VIAL
     Route: 042
     Dates: start: 20130430, end: 20130619

REACTIONS (4)
  - Disease progression [Not Recovered/Not Resolved]
  - Mucosal inflammation [Not Recovered/Not Resolved]
  - Peripheral T-cell lymphoma unspecified [None]
  - Malignant neoplasm progression [None]
